FAERS Safety Report 9122003 (Version 2)
Quarter: 2013Q3

REPORT INFORMATION
  Report Type: Spontaneous
  Country: US (occurrence: US)
  Receive Date: 20130227
  Receipt Date: 20130909
  Transmission Date: 20140515
  Serious: Yes (Other)
  Sender: FDA-Public Use
  Company Number: US-PFIZER INC-2013066969

PATIENT
  Age: 66 Year
  Sex: Female

DRUGS (11)
  1. SUTENT [Suspect]
     Indication: GASTROINTESTINAL STROMAL TUMOUR
     Dosage: 37.5 MG, 1X/DAY
     Dates: start: 20120220
  2. SUTENT [Suspect]
     Dosage: 25 MG, 1X/DAY
     Dates: start: 201207
  3. GLEEVEC [Suspect]
     Indication: GASTROINTESTINAL STROMAL TUMOUR
     Dosage: UNK
  4. METFORMIN [Concomitant]
     Dosage: 850 MG, 2X/DAY
     Route: 048
  5. GLIPIZIDE [Concomitant]
     Dosage: 5 MG, 1X/DAY
     Route: 048
  6. HYDROCHLOROTHIAZIDE [Concomitant]
     Dosage: 25 MG, 1X/DAY
     Route: 048
  7. NEXIUM [Concomitant]
     Dosage: 40 MG, 1X/DAY
     Route: 048
  8. LISINOPRIL [Concomitant]
     Dosage: 40 MG, 1X/DAY
     Route: 048
  9. NIFEDIPINE [Concomitant]
     Dosage: 60 MG, 1X/DAY
     Route: 048
  10. SIMVASTATIN [Concomitant]
     Dosage: 20 MG, 1X/DAY (NIGHTLY)
     Route: 048
  11. MIRALAX [Concomitant]
     Dosage: 17 G, 1X/DAY (NIGHTLY)
     Route: 048

REACTIONS (9)
  - Liver disorder [Recovered/Resolved]
  - Second primary malignancy [Unknown]
  - Breast cancer female [Unknown]
  - Oral pain [Recovered/Resolved]
  - Fatigue [Recovered/Resolved]
  - Nausea [Recovered/Resolved]
  - Vomiting [Recovered/Resolved]
  - Diarrhoea [Recovered/Resolved]
  - Constipation [Recovered/Resolved]
